FAERS Safety Report 5626508-9 (Version None)
Quarter: 2008Q1

REPORT INFORMATION
  Report Type: 
  Country: None (occurrence: None)
  Receive Date: 20080214
  Receipt Date: 20080207
  Transmission Date: 20080703
  Serious: Yes (Other)
  Sender: FDA-Public Use
  Company Number: BR-ASTRAZENECA-2008UW01753

PATIENT
  Age: 82 Year
  Sex: Female

DRUGS (3)
  1. ARIMIDEX [Suspect]
     Indication: BREAST CANCER FEMALE
     Route: 048
     Dates: start: 20070101, end: 20070701
  2. DIOVAN [Concomitant]
     Indication: HYPERTENSION
     Route: 048
     Dates: start: 19790101
  3. MONOCORDIL [Concomitant]
     Indication: ANGINA UNSTABLE
     Route: 048
     Dates: start: 19790101

REACTIONS (11)
  - ANAEMIA [None]
  - CHEST PAIN [None]
  - CONSTIPATION [None]
  - DEPRESSION [None]
  - DISEASE PROGRESSION [None]
  - DYSPNOEA [None]
  - HAEMORRHAGE [None]
  - METASTASES TO BONE [None]
  - OBSTRUCTION [None]
  - PULMONARY OEDEMA [None]
  - SWELLING [None]
